FAERS Safety Report 15377191 (Version 2)
Quarter: 2018Q3

REPORT INFORMATION
  Report Type: Spontaneous
  Country: US (occurrence: US)
  Receive Date: 20180913
  Receipt Date: 20180927
  Transmission Date: 20181010
  Serious: No
  Sender: FDA-Public Use
  Company Number: US-PFIZER INC-2018365909

PATIENT
  Sex: Female

DRUGS (1)
  1. XELJANZ [Suspect]
     Active Substance: TOFACITINIB CITRATE
     Dosage: UNK (FOR ABOUT 3 MONTHS)

REACTIONS (5)
  - Rash erythematous [Unknown]
  - Infection [Unknown]
  - Arthralgia [Unknown]
  - Muscle spasms [Unknown]
  - Pain [Unknown]
